FAERS Safety Report 8559548-0 (Version None)
Quarter: 2012Q3

REPORT INFORMATION
  Report Type: 
  Country: None (occurrence: None)
  Receive Date: 20120802
  Receipt Date: 20120724
  Transmission Date: 20120928
  Serious: Yes (Other)
  Sender: FDA-Public Use
  Company Number: CA-JNJFOC-20120707605

PATIENT
  Sex: Female

DRUGS (3)
  1. AN UNKNOWN MEDICATION [Concomitant]
     Indication: COLITIS
     Route: 065
  2. AN UNKNOWN MEDICATION [Concomitant]
     Indication: CROHN'S DISEASE
     Route: 065
  3. RISPERDAL [Suspect]
     Indication: BIPOLAR DISORDER
     Route: 048

REACTIONS (5)
  - SPEECH DISORDER [None]
  - NIGHT SWEATS [None]
  - ABASIA [None]
  - HYPERHIDROSIS [None]
  - DEPRESSION [None]
